FAERS Safety Report 9203080 (Version 1)
Quarter: 2013Q1

REPORT INFORMATION
  Report Type: Spontaneous
  Country: RU (occurrence: None)
  Receive Date: 20130328
  Receipt Date: 20130328
  Transmission Date: 20140127
  Serious: Yes (Life-Threatening)
  Sender: FDA-Public Use
  Company Number: 2013-05372

PATIENT
  Age: 46 Year
  Sex: Female

DRUGS (5)
  1. PACLITAXEL (PACLITAXEL) [Suspect]
     Indication: BREAST CANCER
     Route: 042
     Dates: start: 20130314
  2. CARBOPLATIN ABIC (CARBOPLATIN) [Concomitant]
  3. FAMOTIDINE (FAMOTIDINE) [Concomitant]
  4. CLEMASTINE (CLEMASTINE) [Concomitant]
  5. DEXAMETHASONE (DEXAMETHASONE) [Concomitant]

REACTIONS (3)
  - Asphyxia [None]
  - Spinal pain [None]
  - Dyspnoea [None]
